FAERS Safety Report 6988147-7 (Version None)
Quarter: 2010Q3

REPORT INFORMATION
  Report Type: 
  Country: None (occurrence: None)
  Receive Date: 20100916
  Receipt Date: 20100903
  Transmission Date: 20110219
  Serious: Yes (Other)
  Sender: FDA-Public Use
  Company Number: PHHY2010US58597

PATIENT
  Age: 55 Year
  Sex: Female

DRUGS (2)
  1. PAMIDRONATE DISODIUM [Suspect]
     Indication: LUNG NEOPLASM MALIGNANT
  2. ZOLEDRONIC ACID [Suspect]
     Indication: LUNG NEOPLASM MALIGNANT

REACTIONS (4)
  - JAW DISORDER [None]
  - OSTEITIS [None]
  - OSTEONECROSIS OF JAW [None]
  - TOOTH LOSS [None]
